FAERS Safety Report 4983022-1 (Version None)
Quarter: 2006Q2

REPORT INFORMATION
  Report Type: 
  Country: None (occurrence: None)
  Receive Date: 20060420
  Receipt Date: 20060407
  Transmission Date: 20061013
  Serious: Yes (Other)
  Sender: FDA-Public Use
  Company Number: 2006049193

PATIENT
  Age: 51 Year
  Sex: Male
  Weight: 68.0396 kg

DRUGS (5)
  1. NEURONTIN [Suspect]
     Indication: DIABETIC NEUROPATHY
     Dosage: 2400 MG (800 MG, 3 IN 1 D)
     Dates: start: 20040101
  2. LYRICA [Suspect]
     Indication: DIABETIC NEUROPATHY
     Dosage: 225 MG (75 MG, 3 IN 1 D)
     Dates: start: 20060101
  3. PERCOCET [Concomitant]
  4. TORADOL [Concomitant]
  5. TYLENOL [Concomitant]

REACTIONS (5)
  - DRUG INEFFECTIVE [None]
  - IMMOBILE [None]
  - INADEQUATE ANALGESIA [None]
  - MUSCULOSKELETAL CHEST PAIN [None]
  - PAIN IN EXTREMITY [None]
